FAERS Safety Report 5703280-5 (Version None)
Quarter: 2008Q2

REPORT INFORMATION
  Report Type: 
  Country: None (occurrence: None)
  Receive Date: 20080411
  Receipt Date: 20080331
  Transmission Date: 20081010
  Serious: Yes (Hospitalization)
  Sender: FDA-Public Use
  Company Number: FR-ROCHE-556432

PATIENT
  Sex: Female

DRUGS (15)
  1. ROCEPHIN [Suspect]
     Indication: DRUG USE FOR UNKNOWN INDICATION
     Dosage: FORM: INJECTABLE SOLUTION.
     Route: 042
     Dates: start: 20080219, end: 20080224
  2. CIFLOX [Suspect]
     Indication: DRUG USE FOR UNKNOWN INDICATION
     Route: 048
     Dates: start: 20080219, end: 20080225
  3. BACTRIM [Concomitant]
     Dates: start: 20070101, end: 20080226
  4. BACTRIM [Concomitant]
     Dates: start: 20070101, end: 20080226
  5. HEPARIN [Concomitant]
     Indication: PULMONARY EMBOLISM
  6. HEPARIN [Concomitant]
  7. ANTIVITAMIN K [Concomitant]
     Indication: PULMONARY EMBOLISM
  8. PREVISCAN [Concomitant]
     Dates: end: 20080218
  9. PREVISCAN [Concomitant]
     Dates: end: 20080218
  10. VELCADE [Concomitant]
     Dates: start: 20080115
  11. ADRIAMYCIN PFS [Concomitant]
     Dates: start: 20080115
  12. DELLAMETHASONE [Concomitant]
     Dates: start: 20080115
  13. ADRIAMYCIN PFS [Concomitant]
  14. VINCRISTINE [Concomitant]
  15. THALIDOMIDE [Concomitant]

REACTIONS (2)
  - PRURITUS [None]
  - RASH MACULO-PAPULAR [None]
